FAERS Safety Report 14733351 (Version 1)
Quarter: 2018Q2

REPORT INFORMATION
  Report Type: Spontaneous
  Country: ES (occurrence: ES)
  Receive Date: 20180409
  Receipt Date: 20180409
  Transmission Date: 20180711
  Serious: Yes (Hospitalization, Other)
  Sender: FDA-Public Use
  Company Number: ES-VISTAPHARM, INC.-VER201804-000544

PATIENT
  Age: 28 Year
  Sex: Female

DRUGS (1)
  1. HYDROCODONE AND ACETAMINOPHEN [Suspect]
     Active Substance: ACETAMINOPHEN\HYDROCODONE
     Indication: PRODUCT USED FOR UNKNOWN INDICATION

REACTIONS (5)
  - Toxicity to various agents [Unknown]
  - Overdose [Unknown]
  - Encephalopathy [Unknown]
  - Acute hepatic failure [Recovered/Resolved]
  - Suicide attempt [Unknown]
